FAERS Safety Report 8044500-4 (Version None)
Quarter: 2012Q1

REPORT INFORMATION
  Report Type: 
  Country: None (occurrence: None)
  Receive Date: 20120113
  Receipt Date: 20120109
  Transmission Date: 20120608
  Serious: Yes (Other)
  Sender: FDA-Public Use
  Company Number: US-JNJFOC-20120103958

PATIENT
  Age: 23 Year
  Sex: Male

DRUGS (2)
  1. MINOXIDIL [Suspect]
     Indication: ALOPECIA
     Dosage: 1/2 CAPFUL, ABOUT A WEEK AND A HALF
     Route: 061
     Dates: start: 20111201, end: 20120106
  2. MINOXIDIL [Suspect]
     Route: 061

REACTIONS (5)
  - PALPITATIONS [None]
  - DIZZINESS [None]
  - ORCHITIS NONINFECTIVE [None]
  - TESTICULAR SWELLING [None]
  - FEELING ABNORMAL [None]
